FAERS Safety Report 10040673 (Version 1)
Quarter: 2014Q1

REPORT INFORMATION
  Report Type: Spontaneous
  Country: GB (occurrence: GB)
  Receive Date: 20140327
  Receipt Date: 20140327
  Transmission Date: 20141002
  Serious: Yes (Hospitalization)
  Sender: FDA-Public Use
  Company Number: GB-TEVA-470707ISR

PATIENT
  Age: 50 Year
  Sex: Female

DRUGS (6)
  1. PHENYTOIN [Suspect]
     Dosage: 300 MILLIGRAM DAILY;
     Route: 065
  2. PHENYTOIN [Suspect]
     Dosage: 225 MILLIGRAM DAILY;
     Route: 065
  3. RAMIPRIL [Concomitant]
     Dosage: 2.5 MILLIGRAM DAILY;
     Route: 065
  4. THIAMINE [Concomitant]
     Dosage: 200 MILLIGRAM DAILY;
     Route: 065
  5. VITAMIN B COMPLEX [Concomitant]
     Dosage: 2 DOSAGE FORMS DAILY;
     Route: 065
  6. FOLIC ACID [Concomitant]
     Dosage: 5 MILLIGRAM DAILY;
     Route: 065

REACTIONS (18)
  - Toxicity to various agents [Recovered/Resolved]
  - Brain injury [Recovering/Resolving]
  - Hepatic encephalopathy [Recovering/Resolving]
  - Nystagmus [Unknown]
  - Intention tremor [Unknown]
  - Dysarthria [Unknown]
  - Ataxia [Unknown]
  - Gingival hypertrophy [Unknown]
  - Hirsutism [Unknown]
  - Fall [Recovering/Resolving]
  - Head injury [Unknown]
  - Cerebellar ataxia [Recovered/Resolved]
  - Spider naevus [Unknown]
  - Dupuytren^s contracture [Unknown]
  - Muscle atrophy [Unknown]
  - Asterixis [Unknown]
  - Hypokalaemia [Unknown]
  - Liver function test abnormal [Unknown]
